FAERS Safety Report 10192424 (Version 2)
Quarter: 2014Q2

REPORT INFORMATION
  Report Type: Report from Study
  Country: ZA (occurrence: ZA)
  Receive Date: 20140523
  Receipt Date: 20140530
  Transmission Date: 20141212
  Serious: Yes (Death, Hospitalization)
  Sender: FDA-Public Use
  Company Number: ZA-BRISTOL-MYERS SQUIBB COMPANY-20775862

PATIENT
  Age: 53 Year
  Sex: Male
  Weight: 40.5 kg

DRUGS (4)
  1. EFAVIRENZ TABS 600 MG [Suspect]
     Indication: HIV INFECTION
     Route: 048
     Dates: start: 20080302, end: 20140414
  2. STAVUDINE [Suspect]
     Indication: HIV INFECTION
     Route: 048
     Dates: start: 20080302, end: 20140414
  3. ATRIPLA [Suspect]
     Indication: HIV INFECTION
     Dosage: TABLET
     Route: 048
     Dates: start: 20140414
  4. LAMIVUDINE [Suspect]
     Indication: HIV INFECTION
     Dosage: TABLET
     Route: 048
     Dates: start: 20080302, end: 20140414

REACTIONS (2)
  - Renal failure acute [Fatal]
  - Diarrhoea [Unknown]
